FAERS Safety Report 4765002-4 (Version None)
Quarter: 2005Q3

REPORT INFORMATION
  Report Type: 
  Country: None (occurrence: None)
  Receive Date: 20050907
  Receipt Date: 20050420
  Transmission Date: 20060218
  Serious: Yes (Hospitalization, Other)
  Sender: FDA-Public Use
  Company Number: 2005081848

PATIENT
  Age: 66 Year
  Sex: Female
  Weight: 62.5964 kg

DRUGS (1)
  1. BEXTRA [Suspect]
     Indication: NEUROPATHY
     Dosage: 30 MG (10 MG, 3 IN 1 D),ORAL
     Route: 048
     Dates: start: 20010101, end: 20041001

REACTIONS (12)
  - BLADDER DISORDER [None]
  - BUNDLE BRANCH BLOCK LEFT [None]
  - CHEST PAIN [None]
  - DRUG INEFFECTIVE [None]
  - HEADACHE [None]
  - HYPERTENSION [None]
  - PAIN [None]
  - PELVIC FRACTURE [None]
  - PERIPHERAL NERVE OPERATION [None]
  - RASH [None]
  - ROAD TRAFFIC ACCIDENT [None]
  - URINARY TRACT INFECTION [None]
